FAERS Safety Report 9515643 (Version 1)
Quarter: 2013Q3

REPORT INFORMATION
  Report Type: Spontaneous
  Country: GB (occurrence: None)
  Receive Date: 20130909
  Receipt Date: 20130909
  Transmission Date: 20140515
  Serious: Yes (Hospitalization, Other)
  Sender: FDA-Public Use
  Company Number: GER/UKI/13/0034407

PATIENT
  Age: 84 Year
  Sex: Female

DRUGS (7)
  1. CLOPIDOGREL (CLOPIDOGREL) [Suspect]
     Indication: PRODUCT USED FOR UNKNOWN INDICATION
  2. ANADIN [Suspect]
     Indication: PRODUCT USED FOR UNKNOWN INDICATION
  3. XARELTO (RIVAROXABAN) [Suspect]
     Dosage: 20 MG, 1 IN 1 D, ORAL
     Route: 048
     Dates: start: 20130719, end: 20130729
  4. DILTIAZEM [Concomitant]
  5. LISINOPRIL (LISINOPRIL) [Concomitant]
  6. SERETIDE (SERETIDE) [Concomitant]
  7. TIOPROPIUM (TIOTROPIUM) [Concomitant]

REACTIONS (3)
  - Gastrointestinal haemorrhage [None]
  - Atrial fibrillation [None]
  - Medication error [None]
